FAERS Safety Report 4428960-3 (Version None)
Quarter: 2004Q3

REPORT INFORMATION
  Report Type: 
  Country: None (occurrence: None)
  Receive Date: 20040818
  Receipt Date: 20040615
  Transmission Date: 20050211
  Serious: No
  Sender: FDA-Public Use
  Company Number: US-GLAXOSMITHKLINE-A0516377A

PATIENT
  Age: 24 Year
  Sex: Female
  Weight: 104.5 kg

DRUGS (3)
  1. LOTRONEX [Suspect]
     Indication: IRRITABLE BOWEL SYNDROME
     Dosage: 1MG TWICE PER DAY
     Route: 048
     Dates: start: 20000526, end: 20001101
  2. DEPO-PROVERA [Concomitant]
  3. PRILOSEC [Concomitant]

REACTIONS (1)
  - ADVERSE EVENT [None]
